FAERS Safety Report 9628127 (Version 2)
Quarter: 2013Q4

REPORT INFORMATION
  Report Type: Spontaneous
  Country: US (occurrence: US)
  Receive Date: 20131017
  Receipt Date: 20131211
  Transmission Date: 20140711
  Serious: No
  Sender: FDA-Public Use
  Company Number: US-B.I. PHARMACEUTICALS,INC./RIDGEFIELD-2013-BI-31502BP

PATIENT
  Age: 73 Year
  Sex: Male
  Weight: 68.49 kg

DRUGS (2)
  1. SPIRIVA [Suspect]
     Indication: CHRONIC OBSTRUCTIVE PULMONARY DISEASE
     Dosage: 18 MCG
     Route: 055
     Dates: start: 201309, end: 201309
  2. ALBUTEROL NEBULIZER [Concomitant]

REACTIONS (3)
  - Lacrimation increased [Recovered/Resolved]
  - Eye infection [Recovered/Resolved]
  - Off label use [Unknown]
